FAERS Safety Report 8976094 (Version 1)
Quarter: 2012Q4

REPORT INFORMATION
  Report Type: Report from Study
  Country: BE (occurrence: BE)
  Receive Date: 20121220
  Receipt Date: 20121220
  Transmission Date: 20130627
  Serious: Yes (Hospitalization)
  Sender: FDA-Public Use
  Company Number: BE-PFIZER INC-BE-WYE-H09844209

PATIENT
  Age: 66 Year
  Sex: Female
  Weight: 87 kg

DRUGS (41)
  1. SIROLIMUS [Suspect]
     Indication: PROPHYLAXIS AGAINST RENAL TRANSPLANT REJECTION
     Dosage: 2 mg, 1x/day
     Route: 048
     Dates: start: 20040725, end: 20050825
  2. MEDROL [Suspect]
     Indication: PROPHYLAXIS AGAINST RENAL TRANSPLANT REJECTION
     Dosage: 14 mg, 1x/day
     Route: 048
     Dates: start: 20040727
  3. MEDROL [Suspect]
     Dosage: 16 mg, 1x/day
     Route: 048
     Dates: start: 20040818
  4. MEDROL [Suspect]
     Dosage: 14 mg, 1x/day
     Route: 048
     Dates: start: 20040827
  5. SOLU-MEDROL [Suspect]
     Indication: PROPHYLAXIS AGAINST RENAL TRANSPLANT REJECTION
     Dosage: 80.0 mg, 1x/day
     Route: 042
     Dates: start: 20040725, end: 20040727
  6. SOLU-CORTEF [Suspect]
     Dosage: 300 mg, UNK
     Route: 042
     Dates: start: 20040819, end: 20040820
  7. DACLIZUMAB [Suspect]
     Indication: PROPHYLAXIS AGAINST RENAL TRANSPLANT REJECTION
     Dosage: 180 mg, UNK
     Route: 042
     Dates: start: 20040725, end: 20040725
  8. DACLIZUMAB [Suspect]
     Dosage: 90 mg, 1 in 2 wk
     Route: 042
     Dates: start: 20040809
  9. MYCOPHENOLATE MOFETIL [Suspect]
     Indication: PROPHYLAXIS AGAINST RENAL TRANSPLANT REJECTION
     Dosage: 500 mg, 4x/day
     Route: 048
     Dates: start: 20040725
  10. MYCOPHENOLATE MOFETIL [Suspect]
     Dosage: 500 mg, 3x/day
     Route: 048
     Dates: start: 20040824
  11. CICLOSPORIN [Suspect]
     Indication: PROPHYLAXIS AGAINST RENAL TRANSPLANT REJECTION
     Dosage: 150 mg, 2x/day
     Route: 048
     Dates: start: 20040825
  12. TACROLIMUS [Suspect]
     Indication: PROPHYLAXIS AGAINST RENAL TRANSPLANT REJECTION
     Route: 065
  13. ASAFLOW [Concomitant]
     Dosage: 160 mg, 1x/day
     Route: 048
     Dates: start: 20040726
  14. ZOVIRAX [Concomitant]
     Dosage: 450 mg, 1x/day
     Route: 042
     Dates: start: 20040725, end: 20040726
  15. ALPHA ^LEO^ [Concomitant]
     Dosage: 0.25 mg, 1x/day
     Route: 048
     Dates: start: 20040804
  16. AMLOR [Concomitant]
     Dosage: 5 mg, 1x/day
     Route: 048
     Dates: start: 20040725, end: 20040822
  17. CALCIUM CARBONATE [Concomitant]
     Dosage: 1 g, 2x/day
     Route: 048
     Dates: start: 20040804
  18. CEFACIDAL [Concomitant]
     Dosage: 1 g, 1x/day
     Route: 042
     Dates: start: 20040725, end: 20040726
  19. NEORECORMON [Concomitant]
     Dosage: 4000 IU, 1 wk
     Route: 058
     Dates: start: 20040814
  20. DIFLUCAN [Concomitant]
     Dosage: 200 mg, 2x/day
     Route: 048
     Dates: start: 20040804, end: 20040813
  21. LASIX [Concomitant]
     Dosage: 40 mg, 1x/day
     Route: 048
     Dates: start: 20040824
  22. GLUCONORM [Concomitant]
     Dosage: 30 mg, 2x/day
     Route: 048
     Dates: start: 20040814
  23. GLURENORM [Concomitant]
     Dosage: 30 mg, 2x/day
     Route: 048
     Dates: start: 20040809
  24. ACTRAPID HUMAN [Concomitant]
     Dosage: 4 IU, 2x/day
     Route: 058
     Dates: start: 20040725
  25. TAVANIC [Concomitant]
     Dosage: 500 mg, 1x/day
     Route: 042
     Dates: start: 20040726, end: 20040805
  26. TAVANIC [Concomitant]
     Dosage: 500 mg, 2x/day
     Route: 048
     Dates: start: 20040815, end: 20040816
  27. ZESTRIL [Concomitant]
     Dosage: 5 mg, 1x/day
     Route: 048
     Dates: start: 20040811
  28. MOVICOL [Concomitant]
     Dosage: UNK
     Route: 048
     Dates: start: 20040814
  29. MAGNESIUM GLUCONATE [Concomitant]
     Dosage: UNK
     Route: 048
     Dates: start: 20040824
  30. MERONEM [Concomitant]
     Dosage: UNK
     Route: 042
     Dates: end: 20040603
  31. MERONEM [Concomitant]
     Dosage: 1 g, 3x/day
     Route: 042
     Dates: start: 20040820
  32. SELOKEN [Concomitant]
     Dosage: 50 mg, 1x/day
     Route: 048
     Dates: start: 20040725
  33. NADROPARIN CALCIUM [Concomitant]
     Dosage: 0.3 ml, 1x/day
     Route: 058
     Dates: start: 20040804
  34. OMEPRAZOLE [Concomitant]
     Dosage: 40 mg, 1x/day
     Route: 048
     Dates: start: 20040824
  35. BACTRIM [Concomitant]
     Dosage: 400 mg, 1x/day
     Route: 048
     Dates: start: 20040726
  36. BACTRIM FORTE [Concomitant]
     Dosage: 400 mg, 1x/day
     Route: 048
     Dates: start: 20040804
  37. VALCYTE [Concomitant]
     Dosage: 450 mg, 2x/day
     Route: 048
     Dates: start: 20040726
  38. GUAIFENESIN/PHENYLEPHRINE HYDROCHLORIDE [Concomitant]
     Dosage: 20 ml, 2x/day
     Route: 048
     Dates: start: 20040814
  39. AUGMENTIN [Concomitant]
     Dosage: 1 g, 3x/day
     Route: 042
     Dates: start: 20040804
  40. AUGMENTIN [Concomitant]
     Dosage: 500 mg, 3x/day
     Route: 048
     Dates: start: 20040809, end: 20040811
  41. AUGMENTIN [Concomitant]
     Dosage: 500 mg, 3x/day
     Route: 048
     Dates: start: 20040816

REACTIONS (10)
  - Pulmonary embolism [Recovered/Resolved]
  - Gastrooesophageal reflux disease [Recovered/Resolved]
  - Wound secretion [Recovered/Resolved]
  - Oesophageal candidiasis [Recovered/Resolved]
  - Urinary tract infection [Recovered/Resolved]
  - Enterobacter infection [Recovered/Resolved]
  - Renal transplant [Recovered/Resolved]
  - Wound dehiscence [Recovered/Resolved]
  - Perinephric collection [Recovered/Resolved]
  - Blood creatinine increased [Recovering/Resolving]
